FAERS Safety Report 7752672-1 (Version None)
Quarter: 2011Q3

REPORT INFORMATION
  Report Type: 
  Country: None (occurrence: None)
  Receive Date: 20110915
  Receipt Date: 20110912
  Transmission Date: 20111222
  Serious: Yes (Death)
  Sender: FDA-Public Use
  Company Number: FR-ROCHE-752266

PATIENT
  Sex: Female
  Weight: 96 kg

DRUGS (7)
  1. PRAZOSIN HCL [Concomitant]
     Dates: start: 19900101
  2. PACLITAXEL [Suspect]
     Indication: OVARIAN CANCER
     Dosage: DATE OF LAST DOSE PRIOR TO SAE: 15 SEPTEMBER 2010, FREQUENCY: D1-D28, DOSE FORM REPORTED AS 40 MG/M2
     Route: 042
     Dates: start: 20100302
  3. ALDACTAZINE [Concomitant]
     Dates: start: 20050101
  4. PRAZOSIN HCL [Concomitant]
     Dates: start: 20050101
  5. TENORMIN [Concomitant]
     Dates: start: 20080101
  6. BEVACIZUMAB [Suspect]
     Indication: OVARIAN CANCER
     Dosage: DATE OF LAST DOSE PRIOR TO SAE: 22 DECEMBER 2010, DOSAGE FORM: 10 MG/KG, FREQUENCY: D1-D15/W2
     Route: 042
     Dates: start: 20100302
  7. TENORMIN [Concomitant]
     Dates: start: 20070101

REACTIONS (1)
  - CARDIAC ARREST [None]
